FAERS Safety Report 18432558 (Version 1)
Quarter: 2020Q4

REPORT INFORMATION
  Report Type: Spontaneous
  Country: GB (occurrence: GB)
  Receive Date: 20201027
  Receipt Date: 20201027
  Transmission Date: 20210114
  Serious: Yes (Other)
  Sender: FDA-Public Use
  Company Number: GB-TEVA-2020-GB-1840973

PATIENT
  Age: 24 Year
  Sex: Female
  Weight: 52.61 kg

DRUGS (1)
  1. PREDNISOLONE. [Suspect]
     Active Substance: PREDNISOLONE
     Indication: ANAPHYLACTIC REACTION
     Dosage: 80MG
     Route: 048
     Dates: start: 20200914, end: 20200916

REACTIONS (3)
  - Cognitive disorder [Recovered/Resolved]
  - Aphasia [Unknown]
  - Amnesia [Recovered/Resolved]

NARRATIVE: CASE EVENT DATE: 20200914
